FAERS Safety Report 7120531-3 (Version None)
Quarter: 2010Q4

REPORT INFORMATION
  Report Type: 
  Country: None (occurrence: None)
  Receive Date: 20101124
  Receipt Date: 20101116
  Transmission Date: 20110411
  Serious: Yes (Hospitalization, Other)
  Sender: FDA-Public Use
  Company Number: FR-PFIZER INC-2010148836

PATIENT
  Age: 66 Year
  Sex: Male

DRUGS (7)
  1. TAHOR [Suspect]
     Dosage: 20 MG, 1X/DAY
     Route: 048
     Dates: start: 20060701, end: 20100924
  2. XELEVIA [Suspect]
     Dosage: 1 DF, 1X/DAY
     Route: 048
     Dates: start: 20090201
  3. METFORMIN [Concomitant]
     Dosage: 1 DF, 3X/DAY
     Dates: start: 20050601
  4. ACTOS [Concomitant]
     Dosage: UNK
     Dates: start: 20051001
  5. PANTOPRAZOLE [Concomitant]
     Dosage: 1 DF, 1X/DAY
     Dates: start: 20060301
  6. TAREG [Concomitant]
     Dosage: UNK
     Dates: start: 20091101
  7. KARDEGIC [Concomitant]
     Dosage: UNK
     Dates: start: 20100601

REACTIONS (2)
  - DRUG INTERACTION [None]
  - RHABDOMYOLYSIS [None]
